FAERS Safety Report 12519666 (Version 3)
Quarter: 2016Q4

REPORT INFORMATION
  Report Type: Spontaneous
  Country: US (occurrence: US)
  Receive Date: 20160701
  Receipt Date: 20161103
  Transmission Date: 20170207
  Serious: No
  Sender: FDA-Public Use
  Company Number: US-BIOGEN-2016BI00259886

PATIENT
  Sex: Female

DRUGS (1)
  1. TECFIDERA [Suspect]
     Active Substance: DIMETHYL FUMARATE
     Indication: MULTIPLE SCLEROSIS
     Route: 065
     Dates: start: 20141124

REACTIONS (7)
  - Central nervous system lesion [Not Recovered/Not Resolved]
  - Back disorder [Not Recovered/Not Resolved]
  - Musculoskeletal disorder [Not Recovered/Not Resolved]
  - Abdominal pain upper [Recovered/Resolved]
  - Pain [Not Recovered/Not Resolved]
  - Flushing [Recovered/Resolved]
  - Feeling hot [Recovered/Resolved]
